FAERS Safety Report 14726636 (Version 1)
Quarter: 2018Q2

REPORT INFORMATION
  Report Type: Spontaneous
  Country: HU (occurrence: HU)
  Receive Date: 20180406
  Receipt Date: 20180406
  Transmission Date: 20180711
  Serious: Yes (Other)
  Sender: FDA-Public Use
  Company Number: HU-CIPLA LTD.-2018HU14651

PATIENT

DRUGS (6)
  1. ACTINOMYCIN D [Suspect]
     Active Substance: DACTINOMYCIN
     Indication: ANGIOSARCOMA
     Dosage: 1.5 MG/M2, ONCE AT THE FIRST WEEK
     Route: 065
  2. EPIRUBICIN [Suspect]
     Active Substance: EPIRUBICIN
     Indication: ANGIOSARCOMA
     Dosage: 150 MG/M2, ONCE AT THE FOURTH WEEK
     Route: 065
  3. IFOSFAMIDE. [Suspect]
     Active Substance: IFOSFAMIDE
     Indication: ANGIOSARCOMA
     Dosage: 3000 MG/M2, THREE CONSECUTIVE DAYS OF THE FIRST AND SEVENTH WEEKS
     Route: 065
  4. CARBOPLATIN. [Suspect]
     Active Substance: CARBOPLATIN
     Indication: ANGIOSARCOMA
     Dosage: 500 MG/M2, ONCE AT THE FOURTH WEEK
     Route: 065
  5. ETOPOSIDE. [Suspect]
     Active Substance: ETOPOSIDE
     Indication: ANGIOSARCOMA
     Dosage: 150 MG/M2, ONCE AT THE SEVENTH WEEK
     Route: 065
  6. VINCRISTINE [Suspect]
     Active Substance: VINCRISTINE
     Indication: ANGIOSARCOMA
     Dosage: 1.5 MG/M2, WEEKLY
     Route: 065

REACTIONS (1)
  - Malignant neoplasm progression [Recovering/Resolving]
